FAERS Safety Report 6099756-4 (Version None)
Quarter: 2009Q1

REPORT INFORMATION
  Report Type: 
  Country: None (occurrence: None)
  Receive Date: 20090303
  Receipt Date: 20090218
  Transmission Date: 20090719
  Serious: Yes (Other)
  Sender: FDA-Public Use
  Company Number: US-ROCHE-611798

PATIENT
  Sex: Female
  Weight: 91.6 kg

DRUGS (1)
  1. CAPECITABINE [Suspect]
     Dosage: INDICATION REPORTED AS: OTHER, 5 TABLETS DAILY
     Route: 065
     Dates: start: 20080920

REACTIONS (2)
  - DISEASE PROGRESSION [None]
  - DRUG INEFFECTIVE [None]
